FAERS Safety Report 15477492 (Version 1)
Quarter: 2018Q4

REPORT INFORMATION
  Report Type: Report from Study
  Country: BR (occurrence: BR)
  Receive Date: 20181009
  Receipt Date: 20181009
  Transmission Date: 20190205
  Serious: Yes (Death, Hospitalization, Other)
  Sender: FDA-Public Use
  Company Number: BR-AMGEN-BRACT2018138791

PATIENT
  Age: 62 Year
  Sex: Female

DRUGS (12)
  1. ACETYLSALICYLIC ACID [Concomitant]
     Active Substance: ASPIRIN
     Dosage: UNK
     Dates: start: 2015
  2. RENAGEL [Concomitant]
     Active Substance: SEVELAMER HYDROCHLORIDE
     Dosage: UNK
     Dates: start: 2014
  3. PURAN [Concomitant]
     Active Substance: LEVOTHYROXINE SODIUM
     Dosage: UNK
     Dates: start: 2010
  4. ATORVASTATIN [Concomitant]
     Active Substance: ATORVASTATIN
     Dosage: UNK
     Dates: start: 2016
  5. ERYTHROPOIETIN [Concomitant]
     Active Substance: ERYTHROPOIETIN
     Dosage: UNK
     Dates: start: 2015, end: 20180611
  6. OMEPRAZOLE. [Concomitant]
     Active Substance: OMEPRAZOLE
     Dosage: UNK
     Dates: start: 2016
  7. LOSARTAN. [Concomitant]
     Active Substance: LOSARTAN
     Dosage: UNK
     Dates: start: 2015
  8. DARBEPOETIN ALFA [Suspect]
     Active Substance: DARBEPOETIN ALFA
     Indication: ANAEMIA
     Dosage: 50 MUG, Q2WK
     Route: 058
     Dates: start: 20180625, end: 20180625
  9. NORIPURUM [Concomitant]
     Active Substance: IRON POLYMALTOSE
     Dosage: UNK
     Dates: start: 2014
  10. CALCIJEX [Concomitant]
     Active Substance: CALCITRIOL
     Dosage: UNK
     Dates: start: 2017
  11. NPH INSULIN [Concomitant]
     Active Substance: INSULIN BEEF
     Dosage: UNK
     Dates: start: 2010
  12. CARVEDILOL. [Concomitant]
     Active Substance: CARVEDILOL
     Dosage: UNK
     Dates: start: 2015

REACTIONS (1)
  - Cardio-respiratory arrest [Fatal]

NARRATIVE: CASE EVENT DATE: 20180706
